FAERS Safety Report 15426711 (Version 1)
Quarter: 2018Q3

REPORT INFORMATION
  Report Type: Spontaneous
  Country: US (occurrence: US)
  Receive Date: 20180925
  Receipt Date: 20180925
  Transmission Date: 20181010
  Serious: No
  Sender: FDA-Public Use
  Company Number: US-ASTRAZENECA-2018SF09034

PATIENT
  Age: 44 Year
  Sex: Female
  Weight: 105.7 kg

DRUGS (6)
  1. FARXIGA [Suspect]
     Active Substance: DAPAGLIFLOZIN PROPANEDIOL
     Indication: WEIGHT INCREASED
     Route: 048
     Dates: start: 20180621, end: 20180912
  2. HUMALOG [Concomitant]
     Active Substance: INSULIN LISPRO
     Indication: DIABETES MELLITUS
     Dates: start: 201802
  3. VITAMIN D [Concomitant]
     Active Substance: CHOLECALCIFEROL
  4. LANTUS [Concomitant]
     Active Substance: INSULIN GLARGINE
     Indication: DIABETES MELLITUS
     Dates: start: 201802
  5. IRON [Concomitant]
     Active Substance: IRON
     Indication: BLOOD IRON DECREASED
  6. FARXIGA [Suspect]
     Active Substance: DAPAGLIFLOZIN PROPANEDIOL
     Indication: DIABETES MELLITUS
     Route: 048
     Dates: start: 20180621, end: 20180912

REACTIONS (6)
  - Vulvovaginal mycotic infection [Unknown]
  - Off label use [Unknown]
  - Product use in unapproved indication [Unknown]
  - Pollakiuria [Unknown]
  - Weight increased [Unknown]
  - Menstrual disorder [Unknown]

NARRATIVE: CASE EVENT DATE: 2018
